FAERS Safety Report 8825205 (Version 1)
Quarter: 2012Q4

REPORT INFORMATION
  Report Type: 
  Country: US (occurrence: US)
  Receive Date: 20121004
  Receipt Date: 20121004
  Transmission Date: 20130627
  Serious: Yes (Hospitalization, Other)
  Sender: FDA-Public Use
  Company Number: US-BAYER-2012-100864

PATIENT
  Age: 60 Year
  Sex: Female

DRUGS (1)
  1. CIPRO [Suspect]
     Indication: URINARY TRACT INFECTION
     Dosage: only took one pill
     Route: 048
     Dates: start: 201209

REACTIONS (7)
  - Tendon rupture [None]
  - Foot fracture [None]
  - Tendon graft [None]
  - Abasia [None]
  - Pain in extremity [None]
  - Oedema peripheral [None]
  - Tendon disorder [None]
